FAERS Safety Report 6764384-1 (Version None)
Quarter: 2010Q2

REPORT INFORMATION
  Report Type: 
  Country: None (occurrence: None)
  Receive Date: 20100610
  Receipt Date: 20100601
  Transmission Date: 20101027
  Serious: Yes (Other)
  Sender: FDA-Public Use
  Company Number: US-PFIZER INC-2010071316

PATIENT
  Sex: Female
  Weight: 117 kg

DRUGS (6)
  1. NORPACE [Suspect]
     Indication: ATRIAL FIBRILLATION
     Dosage: 100 MG, 2X/DAY
     Route: 048
  2. DIGOXIN [Concomitant]
     Indication: CARDIAC DISORDER
     Dosage: 0.125 MG, UNK
  3. ZOLOFT [Concomitant]
     Indication: DEPRESSION
     Dosage: 150 MG, UNK
  4. CLONAZEPAM [Concomitant]
     Dosage: 6 MG, DAILY
  5. TEMAZEPAM [Concomitant]
     Indication: SLEEP DISORDER
     Dosage: UNK
  6. DEPAKOTE [Concomitant]
     Dosage: 1500 MG, UNK

REACTIONS (3)
  - CATARACT [None]
  - MALAISE [None]
  - PALPITATIONS [None]
